FAERS Safety Report 21256022 (Version 10)
Quarter: 2024Q2

REPORT INFORMATION
  Report Type: Report from Study
  Country: US (occurrence: US)
  Receive Date: 20220825
  Receipt Date: 20240430
  Transmission Date: 20240716
  Serious: Yes (Other)
  Sender: FDA-Public Use
  Company Number: US-002147023-NVSC2022US189750

PATIENT
  Age: 45 Year
  Sex: Female

DRUGS (4)
  1. KESIMPTA [Suspect]
     Active Substance: OFATUMUMAB
     Indication: Relapsing multiple sclerosis
     Dosage: 20 MG, QW
     Route: 065
  2. KESIMPTA [Suspect]
     Active Substance: OFATUMUMAB
     Indication: Clinically isolated syndrome
     Dosage: 20 MG, QMO
     Route: 058
     Dates: start: 20220803
  3. KESIMPTA [Suspect]
     Active Substance: OFATUMUMAB
     Indication: Relapsing-remitting multiple sclerosis
  4. KESIMPTA [Suspect]
     Active Substance: OFATUMUMAB
     Indication: Secondary progressive multiple sclerosis

REACTIONS (17)
  - Multiple sclerosis relapse [Unknown]
  - Pain [Recovering/Resolving]
  - Limb discomfort [Recovering/Resolving]
  - Fatigue [Recovering/Resolving]
  - Loss of consciousness [Unknown]
  - Alopecia [Recovering/Resolving]
  - Gingival bleeding [Recovering/Resolving]
  - Gingivitis [Unknown]
  - Urinary tract infection [Recovering/Resolving]
  - Oral infection [Unknown]
  - COVID-19 [Unknown]
  - Pain [Unknown]
  - Pyrexia [Unknown]
  - Fatigue [Recovered/Resolved]
  - Dizziness [Unknown]
  - Skin lesion [Recovering/Resolving]
  - Muscular weakness [Recovering/Resolving]

NARRATIVE: CASE EVENT DATE: 20220831
